FAERS Safety Report 7089325-1 (Version None)
Quarter: 2010Q4

REPORT INFORMATION
  Report Type: 
  Country: None (occurrence: None)
  Receive Date: 20101108
  Receipt Date: 20101025
  Transmission Date: 20110411
  Serious: No
  Sender: FDA-Public Use
  Company Number: US-JNJFOC-20101007498

PATIENT
  Sex: Female
  Weight: 86.18 kg

DRUGS (13)
  1. SANDOZ FENTANYL TRANSDERMAL SYSTEM [Suspect]
     Indication: PAIN
     Route: 062
  2. ASPIRIN [Suspect]
     Indication: ILL-DEFINED DISORDER
     Route: 048
  3. VITAMIN D [Suspect]
     Indication: ILL-DEFINED DISORDER
     Route: 048
  4. LOVAZA [Suspect]
     Indication: ILL-DEFINED DISORDER
     Route: 048
  5. HYDROCODONE BITARTRATE [Concomitant]
     Indication: BREAKTHROUGH PAIN
     Dosage: 10/325
     Route: 048
  6. SAVELLA [Concomitant]
     Indication: FIBROMYALGIA
     Route: 048
  7. GABAPENTIN [Concomitant]
     Indication: NEURALGIA
     Route: 048
  8. LORAZEPAM [Concomitant]
     Indication: ANXIETY
     Dosage: 0.5 OR 1 MG/ ONE OR TWO UP TO SIX PER DAY
     Route: 048
  9. ZETIA [Concomitant]
     Indication: BLOOD CHOLESTEROL INCREASED
     Route: 048
  10. LISINOPRIL [Concomitant]
     Indication: HYPERTENSION
     Route: 048
  11. ALPRAZOLAM [Concomitant]
     Indication: DEPRESSION
     Route: 048
  12. ALPRAZOLAM [Concomitant]
     Indication: ANXIETY
     Route: 048
  13. DIPYRIDAMOLE [Concomitant]
     Indication: ANTIPHOSPHOLIPID SYNDROME
     Route: 048

REACTIONS (3)
  - HYPOHIDROSIS [None]
  - THERAPEUTIC RESPONSE UNEXPECTED [None]
  - WRONG TECHNIQUE IN DRUG USAGE PROCESS [None]
